FAERS Safety Report 17058646 (Version 1)
Quarter: 2019Q4

REPORT INFORMATION
  Report Type: Spontaneous
  Country: US (occurrence: US)
  Receive Date: 20191022
  Receipt Date: 20191022
  Transmission Date: 20200122
  Serious: Yes (Death)
  Sender: FDA-Public Use
  Company Number: None

PATIENT
  Sex: Male
  Weight: 11.8 kg

DRUGS (4)
  1. CISPLATIN. [Suspect]
     Active Substance: CISPLATIN
     Dates: end: 20190828
  2. VINCRISTINE SULFATE. [Suspect]
     Active Substance: VINCRISTINE SULFATE
     Dates: end: 20190904
  3. 5-FLUOROURACIL (5-FU) [Suspect]
     Active Substance: FLUOROURACIL
     Dates: end: 20190828
  4. DOXORUBICIN HYDROCHLORIDE. [Suspect]
     Active Substance: DOXORUBICIN HYDROCHLORIDE
     Dates: end: 20190829

REACTIONS (15)
  - Haemodynamic instability [None]
  - Abdominal distension [None]
  - Respiratory failure [None]
  - Blood bilirubin increased [None]
  - Device related thrombosis [None]
  - Tumour haemorrhage [None]
  - Hepatic mass [None]
  - Tachycardia [None]
  - Hypotension [None]
  - Urine output decreased [None]
  - Blood creatinine increased [None]
  - Fluid overload [None]
  - Haemoglobin decreased [None]
  - Pyrexia [None]
  - Dialysis [None]

NARRATIVE: CASE EVENT DATE: 20180830
